FAERS Safety Report 6897207-0 (Version None)
Quarter: 2010Q3

REPORT INFORMATION
  Report Type: 
  Country: None (occurrence: None)
  Receive Date: 20100802
  Receipt Date: 20070418
  Transmission Date: 20110219
  Serious: No
  Sender: FDA-Public Use
  Company Number: US-PFIZER INC-2007030818

PATIENT
  Age: 79 Year
  Sex: Female

DRUGS (1)
  1. LYRICA [Suspect]
     Indication: PAIN
     Dates: start: 20061201

REACTIONS (5)
  - AGITATION [None]
  - DRUG INEFFECTIVE [None]
  - PAIN [None]
  - SOMNOLENCE [None]
  - WEIGHT INCREASED [None]
